FAERS Safety Report 23141375 (Version 1)
Quarter: 2023Q4

REPORT INFORMATION
  Report Type: Spontaneous
  Country: US (occurrence: None)
  Receive Date: 20231103
  Receipt Date: 20231103
  Transmission Date: 20240109
  Serious: No
  Sender: FDA-Public Use
  Company Number: US-Encube-000505

PATIENT
  Age: 54 Year
  Sex: Female

DRUGS (1)
  1. CLOBETASOL PROPIONATE [Suspect]
     Active Substance: CLOBETASOL PROPIONATE
     Indication: Anogenital lichen planus
     Dosage: USED FOR 2 OR 3 DAYS
     Dates: start: 202310, end: 202310

REACTIONS (2)
  - Lichen planus [Unknown]
  - Off label use [Unknown]

NARRATIVE: CASE EVENT DATE: 20231001
